FAERS Safety Report 4745730-7 (Version None)
Quarter: 2005Q3

REPORT INFORMATION
  Report Type: 
  Country: None (occurrence: None)
  Receive Date: 20050811
  Receipt Date: 20050805
  Transmission Date: 20060218
  Serious: Yes (Other)
  Sender: FDA-Public Use
  Company Number: SGB1-2003-00876

PATIENT
  Sex: 0

DRUGS (1)
  1. ANAGRELIDE HCL [Suspect]

REACTIONS (1)
  - VISUAL ACUITY REDUCED [None]
